FAERS Safety Report 25594638 (Version 5)
Quarter: 2025Q4

REPORT INFORMATION
  Report Type: Report from Study
  Country: KR (occurrence: KR)
  Receive Date: 20250723
  Receipt Date: 20251120
  Transmission Date: 20260117
  Serious: Yes (Disabling, Other)
  Sender: CELLTRION
  Company Number: KR-CELLTRION INC.-2025KR021665

PATIENT

DRUGS (10)
  1. BEVACIZUMAB-ADCD [Suspect]
     Active Substance: BEVACIZUMAB-ADCD
     Indication: Colorectal cancer metastatic
     Dosage: 495 MG Q3W (WEIGHT: 66 KG)
     Route: 042
     Dates: start: 20241029, end: 20250527
  2. BEVACIZUMAB-ADCD [Suspect]
     Active Substance: BEVACIZUMAB-ADCD
     Dosage: 525 MG, Q3W (WEIGHT: 70 KG)
     Route: 042
     Dates: start: 20241119, end: 20250527
  3. BEVACIZUMAB-ADCD [Suspect]
     Active Substance: BEVACIZUMAB-ADCD
     Dosage: 525 MG, Q3W (WEIGHT: 70 KG)
     Route: 042
     Dates: start: 20241210, end: 20250527
  4. BEVACIZUMAB-ADCD [Suspect]
     Active Substance: BEVACIZUMAB-ADCD
     Dosage: 525 MG, Q3W (WEIGHT: 70 KG)
     Route: 042
     Dates: start: 20250107, end: 20250527
  5. BEVACIZUMAB-ADCD [Suspect]
     Active Substance: BEVACIZUMAB-ADCD
     Dosage: 536.2 MG, Q3W (WEIGHT: 71.5 KG)
     Route: 042
     Dates: start: 20250204, end: 20250527
  6. BEVACIZUMAB-ADCD [Suspect]
     Active Substance: BEVACIZUMAB-ADCD
     Dosage: 543.7 MG, Q3W (WEIGHT: 72.5 KG)
     Route: 042
     Dates: start: 20250225, end: 20250527
  7. BEVACIZUMAB-ADCD [Suspect]
     Active Substance: BEVACIZUMAB-ADCD
     Dosage: 542.2 MG, Q3W (WEIGHT: 72.3 KG)
     Route: 042
     Dates: start: 20250318, end: 20250527
  8. BEVACIZUMAB-ADCD [Suspect]
     Active Substance: BEVACIZUMAB-ADCD
     Dosage: 540 MG, Q3W (WEIGHT: 72 KG)
     Route: 042
     Dates: start: 20250408, end: 20250527
  9. BEVACIZUMAB-ADCD [Suspect]
     Active Substance: BEVACIZUMAB-ADCD
     Dosage: 562.5 MG, Q3W (WEIGHT: 75 KG)
     Route: 042
     Dates: start: 20250507, end: 20250527
  10. BEVACIZUMAB-ADCD [Suspect]
     Active Substance: BEVACIZUMAB-ADCD
     Dosage: 547.5 MG, Q3W (WEIGHT: 73 KG)
     Route: 042
     Dates: start: 20250527, end: 20250527

REACTIONS (1)
  - Chronic kidney disease [Not Recovered/Not Resolved]

NARRATIVE: CASE EVENT DATE: 20250106
